FAERS Safety Report 8166216-6 (Version None)
Quarter: 2012Q1

REPORT INFORMATION
  Report Type: 
  Country: None (occurrence: None)
  Receive Date: 20120227
  Receipt Date: 20110527
  Transmission Date: 20120608
  Serious: No
  Sender: FDA-Public Use
  Company Number: US-MYLANLABS-2011S1009406

PATIENT
  Age: 20 Year
  Sex: Female
  Weight: 54.43 kg

DRUGS (3)
  1. YAZ /06358701/ [Concomitant]
     Indication: CONTRACEPTION
     Route: 048
     Dates: start: 20070101
  2. AMNESTEEM [Suspect]
     Route: 048
     Dates: start: 20100917, end: 20110125
  3. AMNESTEEM [Suspect]
     Indication: ACNE
     Route: 048
     Dates: start: 20100917, end: 20110125

REACTIONS (4)
  - EMOTIONAL DISTRESS [None]
  - MOOD ALTERED [None]
  - AGITATION [None]
  - IRRITABILITY [None]
